FAERS Safety Report 7433335-9 (Version None)
Quarter: 2011Q2

REPORT INFORMATION
  Report Type: 
  Country: None (occurrence: None)
  Receive Date: 20110415
  Receipt Date: 20110401
  Transmission Date: 20111010
  Serious: Yes (Congenital Anomaly)
  Sender: FDA-Public Use
  Company Number: 030717

PATIENT

DRUGS (3)
  1. CARBAMAZEPINE [Concomitant]
  2. PHENYTOIN [Concomitant]
  3. LEVETIRACETAM [Suspect]
     Dosage: (DAILY DOSE:750 (UNITS UNSPECIFIED) TRANSPLACENTAL))
     Route: 064

REACTIONS (3)
  - ABORTION INDUCED [None]
  - MATERNAL DRUGS AFFECTING FOETUS [None]
  - TUBEROUS SCLEROSIS [None]
